FAERS Safety Report 7973187-1 (Version None)
Quarter: 2011Q4

REPORT INFORMATION
  Report Type: 
  Country: None (occurrence: None)
  Receive Date: 20111209
  Receipt Date: 20111128
  Transmission Date: 20120403
  Serious: Yes (Disabling)
  Sender: FDA-Public Use
  Company Number: 1000025919

PATIENT
  Age: 69 Year
  Sex: Male

DRUGS (4)
  1. MICARDIS [Suspect]
     Indication: ESSENTIAL HYPERTENSION
     Dosage: 2 DOSAGE FORM (2 DOSAGE FORMS, 1 IN 1 D), ORAL
     Route: 048
     Dates: end: 20110628
  2. MICARDIS [Suspect]
     Indication: ESSENTIAL HYPERTENSION
     Dosage: 0.5 DOSAGE FORM (0.5 DOSAGE FORMS, 1 IN 1 D), ORAL
     Route: 048
     Dates: start: 19980101
  3. KARDEGIC (ACETYLSALICYLATE LYSINE) (ACETYLSALICYLATE LYSINE) [Concomitant]
  4. NEBIVOLOL HCL [Suspect]
     Indication: ESSENTIAL HYPERTENSION
     Dosage: 5 MG (5 MG, 1 IN 1 D), ORAL
     Route: 048
     Dates: start: 20091124, end: 20110628

REACTIONS (1)
  - MYASTHENIA GRAVIS [None]
